FAERS Safety Report 21128187 (Version 1)
Quarter: 2022Q3

REPORT INFORMATION
  Report Type: Spontaneous
  Country: GB (occurrence: GB)
  Receive Date: 20220725
  Receipt Date: 20220725
  Transmission Date: 20221027
  Serious: Yes (Life-Threatening, Other)
  Sender: FDA-Public Use
  Company Number: GB-MHRA-MED-202207172307202690-JZHVY

PATIENT
  Sex: Male

DRUGS (1)
  1. METRONIDAZOLE [Suspect]
     Active Substance: METRONIDAZOLE
     Route: 065

REACTIONS (6)
  - Ventricular fibrillation [Unknown]
  - Loss of consciousness [Unknown]
  - Medication error [Unknown]
  - Overdose [Unknown]
  - Nausea [Unknown]
  - Abdominal pain upper [Unknown]
